FAERS Safety Report 4356629-2 (Version None)
Quarter: 2004Q2

REPORT INFORMATION
  Report Type: 
  Country: None (occurrence: None)
  Receive Date: 20040512
  Receipt Date: 20040407
  Transmission Date: 20050107
  Serious: Yes (Other)
  Sender: FDA-Public Use
  Company Number: PHEH2004US03944

PATIENT
  Age: 56 Year
  Sex: Female

DRUGS (4)
  1. SANDOSTATIN [Suspect]
     Indication: PANCREATITIS
     Dosage: 100 UG, TID
     Dates: start: 20010101
  2. HYDROXYZINE HYDROCHLORIDE [Concomitant]
  3. PANTOPRAZOLE [Concomitant]
  4. PROZAC [Concomitant]
     Dosage: 20 MG, QD

REACTIONS (4)
  - BACK PAIN [None]
  - CONTUSION [None]
  - MYALGIA [None]
  - SPONDYLITIS [None]
